FAERS Safety Report 21651472 (Version 1)
Quarter: 2022Q4

REPORT INFORMATION
  Report Type: Spontaneous
  Country: ES (occurrence: ES)
  Receive Date: 20221128
  Receipt Date: 20221128
  Transmission Date: 20230112
  Serious: Yes (Other)
  Sender: FDA-Public Use
  Company Number: ES-SA-SAC20220726000807

PATIENT
  Age: 70 Year
  Sex: Male

DRUGS (22)
  1. DEXAMETHASONE [Suspect]
     Active Substance: DEXAMETHASONE
     Indication: Product used for unknown indication
     Dosage: UNK
     Route: 065
  2. ISATUXIMAB [Suspect]
     Active Substance: ISATUXIMAB
     Indication: Plasma cell myeloma
     Dosage: UNK
     Route: 065
     Dates: start: 20220621
  3. DEXAMETHASONE [Concomitant]
     Active Substance: DEXAMETHASONE
     Indication: Product used for unknown indication
     Dosage: 20 MG, QW (ON MONDAY AND THURSDAY)
     Route: 065
  4. ACYCLOVIR [Concomitant]
     Active Substance: ACYCLOVIR
     Indication: Product used for unknown indication
     Dosage: 80 MG, QD
     Route: 065
  5. PREGABALIN [Concomitant]
     Active Substance: PREGABALIN
     Indication: Product used for unknown indication
     Dosage: 1 DOSAGE FORM, BID (150-0-150)
     Route: 065
  6. CALCIUM-SANDOZ D3 [Concomitant]
     Indication: Product used for unknown indication
     Dosage: UNK (1000/880 MG/UI)
     Route: 065
  7. POMALIDOMIDE [Concomitant]
     Active Substance: POMALIDOMIDE
     Indication: Product used for unknown indication
     Dosage: 4 MG, QD (X 10 DAYS)
     Route: 065
  8. POMALIDOMIDE [Concomitant]
     Active Substance: POMALIDOMIDE
     Dosage: UNK
     Route: 065
  9. ENOXAPARIN SODIUM [Concomitant]
     Active Substance: ENOXAPARIN SODIUM
     Indication: Product used for unknown indication
     Dosage: 60 MG
     Route: 058
  10. NOLOTIL [Concomitant]
     Indication: Product used for unknown indication
     Dosage: UNK UNK, TID
     Route: 065
  11. ACTIQ [Concomitant]
     Active Substance: FENTANYL CITRATE
     Indication: Product used for unknown indication
     Dosage: UNK (AS PER PRESCRIPTION)
     Route: 065
  12. ERYTHROPOIETIN [Concomitant]
     Active Substance: ERYTHROPOIETIN
     Indication: Product used for unknown indication
     Dosage: 40 IU, QW
     Route: 058
  13. URSOBILANE [Concomitant]
     Indication: Product used for unknown indication
     Dosage: UNK
     Route: 065
  14. URSOBILANE [Concomitant]
     Dosage: 300 MG, Q8H
     Route: 065
  15. CARFILZOMIB [Concomitant]
     Active Substance: CARFILZOMIB
     Indication: Product used for unknown indication
     Dosage: UNK
     Route: 065
  16. CALCIUM [Concomitant]
     Active Substance: CALCIUM
     Indication: Product used for unknown indication
     Dosage: UNK
     Route: 065
  17. ALLOPURINOL ZYDUS [Concomitant]
     Indication: Product used for unknown indication
     Dosage: 300 MG, QD
     Route: 065
  18. TORSEMIDE [Concomitant]
     Active Substance: TORSEMIDE
     Indication: Product used for unknown indication
     Dosage: 1 DOSAGE FORM, QD
     Route: 065
  19. FOLIC ACID [Concomitant]
     Active Substance: FOLIC ACID
     Indication: Product used for unknown indication
     Dosage: UNK UNK, QD
     Route: 065
  20. SULFAMETHOXAZOLE\TRIMETHOPRIM [Concomitant]
     Active Substance: SULFAMETHOXAZOLE\TRIMETHOPRIM
     Indication: Product used for unknown indication
     Dosage: UNK
     Route: 065
  21. LENALIDOMIDE [Concomitant]
     Active Substance: LENALIDOMIDE
     Indication: Product used for unknown indication
     Dosage: UNK
     Route: 065
  22. MST [Concomitant]
     Indication: Product used for unknown indication
     Dosage: 1 DOSAGE FORM, BID (30-0-30)
     Route: 065

REACTIONS (19)
  - Transaminases increased [Unknown]
  - Hepatotoxicity [Unknown]
  - Plasmacytoma [Unknown]
  - Hepatic cytolysis [Unknown]
  - Hepatitis [Unknown]
  - Pancreatic atrophy [Unknown]
  - Hepatitis acute [Unknown]
  - Hepatic cytolysis [Unknown]
  - Biliary dilatation [Unknown]
  - Hepatitis cholestatic [Unknown]
  - Liver function test increased [Unknown]
  - Periportal sinus dilatation [Unknown]
  - Arteriosclerosis [Unknown]
  - Lymphocytosis [Unknown]
  - Liver disorder [Unknown]
  - Osteolysis [Unknown]
  - Pain [Unknown]
  - Splenomegaly [Unknown]
  - Epstein-Barr virus infection [Unknown]

NARRATIVE: CASE EVENT DATE: 20220101
